FAERS Safety Report 5679171-5 (Version None)
Quarter: 2008Q1

REPORT INFORMATION
  Report Type: 
  Country: None (occurrence: None)
  Receive Date: 20080325
  Receipt Date: 20080313
  Transmission Date: 20080703
  Serious: Yes (Other)
  Sender: FDA-Public Use
  Company Number: DE-BAYER-200815048GPV

PATIENT
  Sex: Female

DRUGS (1)
  1. ULTRAVIST 150 [Suspect]

REACTIONS (2)
  - ABDOMINAL DISCOMFORT [None]
  - LIMB DISCOMFORT [None]
